FAERS Safety Report 13230563 (Version 1)
Quarter: 2017Q1

REPORT INFORMATION
  Report Type: Report from Study
  Country: ZA (occurrence: ZA)
  Receive Date: 20170214
  Receipt Date: 20170214
  Transmission Date: 20170428
  Serious: Yes (Other)
  Sender: FDA-Public Use
  Company Number: ZA-GLAXOSMITHKLINE-ZA2017GSK019681

PATIENT
  Sex: Male

DRUGS (9)
  1. CIPLAZAR [Suspect]
     Active Substance: LOSARTAN POTASSIUM
     Indication: HYPERTENSION
     Dosage: 20 MG, UNK
     Route: 048
  2. DIPROGENTA [Suspect]
     Active Substance: BETAMETHASONE DIPROPIONATE\GENTAMICIN SULFATE
     Indication: INFLAMMATION
     Dosage: UNK
     Route: 061
  3. CELEBREX [Suspect]
     Active Substance: CELECOXIB
     Indication: ARTHRITIS
  4. FLUCORIC [Suspect]
     Active Substance: FLUCONAZOLE
     Indication: FUNGAL INFECTION
     Dosage: 150 MG, UNK
     Route: 048
  5. CELEBREX [Suspect]
     Active Substance: CELECOXIB
     Indication: PAIN
     Dosage: 200 MG, UNK
     Route: 048
  6. CELEBREX [Suspect]
     Active Substance: CELECOXIB
     Indication: INFLAMMATION
  7. ECOTRIN [Suspect]
     Active Substance: ASPIRIN
     Indication: CYTOMEGALOVIRUS INFECTION
     Dosage: 81 MG, UNK
     Route: 048
  8. TERBINAFINE. [Suspect]
     Active Substance: TERBINAFINE
     Indication: ANTIFUNGAL TREATMENT
     Dosage: 1 %, UNK
     Route: 061
  9. METFORMIN [Suspect]
     Active Substance: METFORMIN HYDROCHLORIDE
     Indication: DIABETES MELLITUS
     Dosage: 500 MG, UNK
     Route: 048

REACTIONS (2)
  - Arthralgia [Unknown]
  - Arthritis [Unknown]
